FAERS Safety Report 20516203 (Version 2)
Quarter: 2022Q3

REPORT INFORMATION
  Report Type: Report from Study
  Country: AT (occurrence: AT)
  Receive Date: 20220225
  Receipt Date: 20220902
  Transmission Date: 20221026
  Serious: Yes (Hospitalization)
  Sender: FDA-Public Use
  Company Number: AT-ROCHE-2828128

PATIENT
  Age: 47 Year
  Sex: Female
  Weight: 58 kg

DRUGS (47)
  1. CAPECITABINE [Suspect]
     Active Substance: CAPECITABINE
     Indication: HER2 positive breast cancer
     Dosage: FREQUENCY: OTHER SIX TIMES A DAY FOR 14 DAYS, 7 DAYS BREAK , UNIT DOSE : 500 MG , DURATION : 89 DAYS
     Route: 048
     Dates: start: 20200923, end: 20201220
  2. CAPECITABINE [Suspect]
     Active Substance: CAPECITABINE
     Dosage: UNIT DOSE : 500 MG , FREQUENCY TIME : 0.25 DAYS , DURATION : 335 DAYS
     Dates: start: 20210109, end: 20211209
  3. PACLITAXEL [Suspect]
     Active Substance: PACLITAXEL
     Indication: HER2 positive breast cancer
     Dosage: 260 MG/M2
     Route: 042
     Dates: start: 20190724, end: 20190912
  4. ADO-TRASTUZUMAB EMTANSINE [Suspect]
     Active Substance: ADO-TRASTUZUMAB EMTANSINE
     Indication: HER2 positive breast cancer
     Dosage: MOST RECENT DOSE PRIOR TO THE EVENT: 03/JUL/2020, UNIT DOSE  : 3.6 MG/KG , FREQUENCY TIME : 3 WEEKS
     Route: 042
     Dates: start: 20191014, end: 20200518
  5. ADO-TRASTUZUMAB EMTANSINE [Suspect]
     Active Substance: ADO-TRASTUZUMAB EMTANSINE
     Dosage: UNIT DOSE : 2.88 MG , DURATION : 1 DAY
     Dates: start: 20200703, end: 20200703
  6. PERTUZUMAB [Suspect]
     Active Substance: PERTUZUMAB
     Indication: HER2 positive breast cancer
     Dosage: 420 MG
     Route: 042
     Dates: start: 20190724, end: 20190912
  7. TRASTUZUMAB [Suspect]
     Active Substance: TRASTUZUMAB
     Indication: HER2 positive breast cancer
     Dosage: 6 MG/KG
     Route: 042
     Dates: start: 20190724, end: 20190912
  8. LAPATINIB [Suspect]
     Active Substance: LAPATINIB
     Indication: HER2 positive breast cancer
     Dosage: FREQUENCY: OTHER MOST RECENT DOSE PRIOR TO THE EVENT: 09/JAN/2021, , UNIT DOSE 250 MG , FREQUENCY TI
     Route: 048
     Dates: start: 20200923, end: 20211228
  9. LAPATINIB [Suspect]
     Active Substance: LAPATINIB
     Dosage: UNIT DOSE : 250 MG , FREQUENCY TIME : 0.25 DAYS , DURATION : 341 DAYS
     Dates: start: 20210109, end: 20211216
  10. FAM-TRASTUZUMAB DERUXTECAN-NXKI [Suspect]
     Active Substance: FAM-TRASTUZUMAB DERUXTECAN-NXKI
     Indication: HER2 positive breast cancer
     Dosage: UNIT DOSE :3.5 MG/KG  , FREQUENCY TIME : 3 WEEKS  , DURATION : 1 DAY
     Dates: start: 20220324, end: 20220324
  11. FAM-TRASTUZUMAB DERUXTECAN-NXKI [Suspect]
     Active Substance: FAM-TRASTUZUMAB DERUXTECAN-NXKI
     Dosage: UNIT DOSE : 5.5 MG/KG  , FREQUENCY TIME : 3 WEEKS
     Dates: start: 20220110
  12. FAM-TRASTUZUMAB DERUXTECAN-NXKI [Suspect]
     Active Substance: FAM-TRASTUZUMAB DERUXTECAN-NXKI
     Dosage: UNIT DOSE :  4.4 MG/KG , FREQUENCY TIME :3 WEEKS
     Dates: start: 20220419
  13. TRAZODONE HYDROCHLORIDE [Concomitant]
     Active Substance: TRAZODONE HYDROCHLORIDE
     Indication: Product used for unknown indication
     Dosage: ONGOING CHECKED , UNIT DOSE : 150 MG , DURATION : 439 DAYS
     Dates: start: 20190716, end: 20200926
  14. DEXAMETHASONE [Concomitant]
     Active Substance: DEXAMETHASONE
     Indication: COVID-19
     Dosage: ONGOING NOT CHECKED
     Dates: start: 20210302, end: 20210304
  15. DEXAMETHASONE [Concomitant]
     Active Substance: DEXAMETHASONE
     Indication: Intracranial pressure increased
     Dosage: ONGOING CHECKED , DURATION : 71 DAYS
     Dates: start: 20190704, end: 20190912
  16. DEXAMETHASONE [Concomitant]
     Active Substance: DEXAMETHASONE
     Dosage: ONGOING = NOT CHECKED ,DURATION : 13 DAYS
     Dates: start: 20211229, end: 20220110
  17. DEXAMETHASONE [Concomitant]
     Active Substance: DEXAMETHASONE
     Dosage: ONGOING = NOT CHECKED ,
     Dates: start: 20220115
  18. DEXAMETHASONE [Concomitant]
     Active Substance: DEXAMETHASONE
     Dosage: ONGOING = NOT CHECKED , DURATION : 2 DAYS
     Dates: start: 20220111, end: 20220112
  19. DEXAMETHASONE [Concomitant]
     Active Substance: DEXAMETHASONE
     Dosage: DURATION : 72 DAYS
     Dates: start: 20190705, end: 20190914
  20. DEXAMETHASONE [Concomitant]
     Active Substance: DEXAMETHASONE
     Dosage: ONGOING = CHECKED
     Dates: start: 20220110
  21. DEXAMETHASONE [Concomitant]
     Active Substance: DEXAMETHASONE
     Dosage: ONGOING = CHECKED , DURATION : 2 DAYS
     Dates: start: 20220113, end: 20220114
  22. CEOLAT [Concomitant]
     Indication: Product used for unknown indication
     Dosage: ONGOING CHECKED
     Dates: start: 20190815
  23. ZOFRAN [Concomitant]
     Active Substance: ONDANSETRON HYDROCHLORIDE
     Indication: COVID-19
     Dosage: ONGOING CHECKED
     Dates: start: 20190704
  24. ZOFRAN [Concomitant]
     Active Substance: ONDANSETRON HYDROCHLORIDE
     Dosage: ONGOING NOT CHECKED
     Dates: start: 20210302, end: 20210302
  25. ZOFRAN [Concomitant]
     Active Substance: ONDANSETRON HYDROCHLORIDE
     Dosage: ONGOING CHECKED
     Dates: start: 20190701
  26. ZOFRAN [Concomitant]
     Active Substance: ONDANSETRON HYDROCHLORIDE
     Dosage: ONGOING = CHECKED
     Dates: start: 20220110
  27. PANTOPRAZOLE SODIUM [Concomitant]
     Active Substance: PANTOPRAZOLE SODIUM
     Indication: COVID-19
     Dosage: ONGOING NOT CHECKED
     Dates: start: 20210302, end: 20210303
  28. PANTOPRAZOLE SODIUM [Concomitant]
     Active Substance: PANTOPRAZOLE SODIUM
     Dosage: ONGOING = NOT CHECKED
     Dates: start: 20190701
  29. HYDROMORPHONE HYDROCHLORIDE [Concomitant]
     Active Substance: HYDROMORPHONE HYDROCHLORIDE
     Indication: Product used for unknown indication
     Dosage: ONGOING CHECKED
     Dates: start: 20190716
  30. HYDROMORPHONE HYDROCHLORIDE [Concomitant]
     Active Substance: HYDROMORPHONE HYDROCHLORIDE
     Dosage: ONGOING = CHECKED
     Dates: start: 20190716
  31. HYDROMORPHONE HYDROCHLORIDE [Concomitant]
     Active Substance: HYDROMORPHONE HYDROCHLORIDE
     Dosage: ONGOING = CHECKED
     Dates: start: 20220207
  32. CITALOPRAM [Concomitant]
     Active Substance: CITALOPRAM HYDROBROMIDE
     Indication: Product used for unknown indication
     Dosage: ONGOING CHECKED
     Dates: start: 20190715
  33. ALPRAZOLAM [Concomitant]
     Active Substance: ALPRAZOLAM
     Indication: Product used for unknown indication
     Dosage: ONGOING CHECKED
     Dates: start: 20190715
  34. OLANZAPINE [Concomitant]
     Active Substance: OLANZAPINE
     Indication: Product used for unknown indication
     Dosage: ONGOING CHECKED
     Dates: start: 20190904
  35. POLYETHYLENE GLYCOL 4000 [Concomitant]
     Active Substance: POLYETHYLENE GLYCOL 4000
     Indication: Product used for unknown indication
     Dosage: ONGOING  CHECKED, [MACROGOL 4000]
     Dates: start: 20190705
  36. SUCRALAN [Concomitant]
     Indication: Product used for unknown indication
     Dosage: ONGOING CHECKED
     Dates: start: 20190701
  37. ASCORBIC ACID\CALCIUM PHOSPHATE\CHOLECALCIFEROL\CITRIC ACID MONOHYDRAT [Concomitant]
     Active Substance: ASCORBIC ACID\CALCIUM PHOSPHATE\CHOLECALCIFEROL\CITRIC ACID MONOHYDRATE
     Indication: Product used for unknown indication
     Dosage: ONGOING CHECKED
     Dates: start: 20190717
  38. ACETAMINOPHEN [Concomitant]
     Active Substance: ACETAMINOPHEN
     Indication: Product used for unknown indication
     Dosage: ONGOING CHECKED
     Dates: start: 20190701
  39. DRONABINOL [Concomitant]
     Active Substance: DRONABINOL
     Indication: Product used for unknown indication
     Dosage: ONGOING CHECKED
     Dates: start: 20190716
  40. DRONABINOL [Concomitant]
     Active Substance: DRONABINOL
     Dosage: ONGOING = CHECKED
     Dates: start: 20210705
  41. ACETAMINOPHEN [Concomitant]
     Active Substance: ACETAMINOPHEN
     Indication: COVID-19
     Dosage: ONGOING NOT CHECKED
     Dates: start: 20210302, end: 20210303
  42. EUTHYROX [Concomitant]
     Active Substance: LEVOTHYROXINE SODIUM
     Indication: Product used for unknown indication
     Dosage: ONGOING  CHECKED , UNIT DOSE : 50 MICROGRAM , FREQUENCY TIME : 1 DAY , DURATION : 455 DAYS
     Dates: start: 20190703, end: 20200929
  43. EUTHYROX [Concomitant]
     Active Substance: LEVOTHYROXINE SODIUM
     Dosage: UNIT DOSE : 75 MICROGRAM ,FREQUENCY TIME : 1 DAY
     Dates: start: 2019
  44. LOVENOX [Concomitant]
     Active Substance: ENOXAPARIN SODIUM
     Indication: COVID-19
     Dosage: ONGOING  NOT CHECKED
     Dates: start: 20210302, end: 20210305
  45. ENTEROBENE [Concomitant]
     Indication: Diarrhoea
     Dosage: ONGOING = CHECKED
     Dates: start: 20210215
  46. FERINJECT [Concomitant]
     Active Substance: FERRIC CARBOXYMALTOSE
     Indication: Iron deficiency anaemia
     Dosage: ONGOING = NOT CHECKED , DURATION : 1 DAY
     Dates: start: 20220114, end: 20220114
  47. LENDORM [Concomitant]
     Active Substance: BROTIZOLAM
     Indication: Insomnia
     Dosage: ONGOING = CHECKED , UNIT DOSE : 0.25 MG  DURATION : 1 DAY
     Dates: start: 20211229, end: 20211229

REACTIONS (1)
  - COVID-19 [Recovered/Resolved]

NARRATIVE: CASE EVENT DATE: 20210222
